FAERS Safety Report 13444911 (Version 51)
Quarter: 2019Q1

REPORT INFORMATION
  Report Type: Spontaneous
  Country: GB (occurrence: GB)
  Receive Date: 20170414
  Receipt Date: 20190304
  Transmission Date: 20190417
  Serious: Yes (Other)
  Sender: FDA-Public Use
  Company Number: GB-PFIZER INC-2017164211

PATIENT
  Age: 67 Year
  Sex: Female

DRUGS (28)
  1. FABRAZYME [Suspect]
     Active Substance: AGALSIDASE BETA
     Dosage: 50 MG, EVERY 2 WEEKS (FORTNIGHTLY; DOSE OF 50 MG GIVEN AS 35 MG AND 15 MG) (FORTNIGHTLY35MG)
     Route: 041
     Dates: start: 20170206
  2. FABRAZYME [Suspect]
     Active Substance: AGALSIDASE BETA
     Dosage: UNK
     Dates: start: 20170404
  3. FABRAZYME [Suspect]
     Active Substance: AGALSIDASE BETA
     Dosage: 50 MG FORTNIGHTLY
  4. SALBUTAMOL SULFATE [Suspect]
     Active Substance: ALBUTEROL SULFATE
     Indication: COUGH
     Dosage: 2 DF, DAILY DOSE (2 PUFF)
     Route: 055
  5. COLECALCIFEROL [Suspect]
     Active Substance: CHOLECALCIFEROL
     Dosage: 800 IU, 1X/DAY (QD)
     Route: 048
  6. FABRAZYME [Suspect]
     Active Substance: AGALSIDASE BETA
     Dosage: 50 MG EVERY 2 WEEKS
     Dates: end: 20170420
  7. FABRAZYME [Suspect]
     Active Substance: AGALSIDASE BETA
     Dosage: UNK
     Dates: start: 20170420
  8. CLOPIDOGREL HYDROGEN SULFATE [Suspect]
     Active Substance: CLOPIDOGREL BISULFATE
     Dosage: 75 MG, 1X/DAY (QD)
     Route: 048
  9. FABRAZYME [Suspect]
     Active Substance: AGALSIDASE BETA
     Dosage: 50 MG, EVERY 2 WEEKS
     Route: 041
     Dates: start: 20160915
  10. FABRAZYME [Suspect]
     Active Substance: AGALSIDASE BETA
     Dosage: UNK
     Dates: start: 20170320
  11. ASPIRIN. [Suspect]
     Active Substance: ASPIRIN
     Dosage: 75 MG, 1X/DAY (QD)
     Route: 065
  12. NEBIVOLOL HCL [Suspect]
     Active Substance: NEBIVOLOL
     Indication: BLOOD PRESSURE MANAGEMENT
     Dosage: 2.5 MG, 1X/DAY (QD)
     Route: 048
  13. COLECALCIFEROL [Suspect]
     Active Substance: CHOLECALCIFEROL
     Dosage: 800 IU, DAILY (QD)
     Route: 065
  14. AMIODARONE HCL [Suspect]
     Active Substance: AMIODARONE HYDROCHLORIDE
     Dosage: 200 MG, 1X/DAY (QD)
     Route: 065
  15. PERINDOPRIL [Suspect]
     Active Substance: PERINDOPRIL
     Dosage: 4 MG, 1X/DAY (QD)
     Route: 048
  16. LANSOPRAZOLE. [Suspect]
     Active Substance: LANSOPRAZOLE
     Dosage: 30 MG, 1X/DAY (QD)
     Route: 048
  17. CODEINE PHOSPHATE/PARACETAMOL [Suspect]
     Active Substance: ACETAMINOPHEN\CODEINE PHOSPHATE
     Dosage: 4 DF, 4X/DAY
     Route: 048
  18. FABRAZYME [Suspect]
     Active Substance: AGALSIDASE BETA
     Dosage: UNK
     Dates: start: 20171213
  19. CITALOPRAM HYDROCHLORIDE [Suspect]
     Active Substance: CITALOPRAM HYDROCHLORIDE
     Dosage: 10 MG, 1X/DAY (QD)
     Route: 048
  20. FULTIUM-D3 [Suspect]
     Active Substance: CHOLECALCIFEROL
     Dosage: 800 IU, DAILY
     Route: 065
  21. LYRICA [Suspect]
     Active Substance: PREGABALIN
     Dosage: 75 MG, 2X/DAY (BID)
     Route: 048
  22. FABRAZYME [Suspect]
     Active Substance: AGALSIDASE BETA
     Dosage: UNK
     Route: 041
     Dates: start: 20171129
  23. FABRAZYME [Suspect]
     Active Substance: AGALSIDASE BETA
     Dosage: 50 MG EVERY OTHER WEEK (QOW)
  24. FABRAZYME [Suspect]
     Active Substance: AGALSIDASE BETA
     Dosage: 50 MG FORTNIGHTLY
  25. COCODAMOL [Suspect]
     Active Substance: ACETAMINOPHEN\CODEINE PHOSPHATE
     Dosage: 1 DF, 4X/DAY
     Route: 048
  26. SALBUTAMOL SULFATE [Suspect]
     Active Substance: ALBUTEROL SULFATE
     Dosage: UNK
     Route: 055
  27. FABRAZYME [Suspect]
     Active Substance: AGALSIDASE BETA
     Dosage: UNK
     Dates: start: 20170220
  28. CODEINE [Suspect]
     Active Substance: CODEINE
     Dosage: 4 DF, 4X/DAY
     Route: 048

REACTIONS (1)
  - Lower respiratory tract infection [Unknown]
